FAERS Safety Report 12648459 (Version 1)
Quarter: 2016Q3

REPORT INFORMATION
  Report Type: Report from Study
  Country: IN (occurrence: IN)
  Receive Date: 20160812
  Receipt Date: 20160812
  Transmission Date: 20161109
  Serious: Yes (Other)
  Sender: FDA-Public Use
  Company Number: IN-009507513-1607IND009103

PATIENT
  Sex: Female

DRUGS (1)
  1. IMPLANON [Suspect]
     Active Substance: ETONOGESTREL
     Indication: CONTRACEPTION
     Dosage: 1 DF, UNK
     Route: 059

REACTIONS (62)
  - Implant site hypoaesthesia [Unknown]
  - Nasopharyngitis [Unknown]
  - Hypertension [Unknown]
  - Loss of libido [Unknown]
  - Dyspepsia [Unknown]
  - Dyspnoea [Unknown]
  - Vision blurred [Unknown]
  - Metrorrhagia [Unknown]
  - Dysmenorrhoea [Unknown]
  - Hypotension [Unknown]
  - Cough [Unknown]
  - Weight decreased [Unknown]
  - Migraine [Unknown]
  - Headache [Unknown]
  - Asthma [Unknown]
  - Swelling face [Unknown]
  - Haemorrhoids [Unknown]
  - Menorrhagia [Unknown]
  - Oligomenorrhoea [Unknown]
  - Asthenia [Unknown]
  - Vomiting [Unknown]
  - Dysuria [Unknown]
  - Vulvovaginal pruritus [Unknown]
  - Menstruation irregular [Unknown]
  - Vertigo [Unknown]
  - Palpitations [Unknown]
  - Genital discharge [Unknown]
  - Polymenorrhoea [Unknown]
  - Hypomenorrhoea [Unknown]
  - Chikungunya virus infection [Unknown]
  - Dizziness [Unknown]
  - Weight increased [Unknown]
  - Dermatitis allergic [Unknown]
  - Breast tenderness [Unknown]
  - Affective disorder [Unknown]
  - Flatulence [Unknown]
  - Visual acuity reduced [Unknown]
  - Hepatitis [Unknown]
  - Nausea [Unknown]
  - Herpes virus infection [Unknown]
  - Breast pain [Unknown]
  - Anxiety [Unknown]
  - Decreased appetite [Unknown]
  - Diarrhoea [Unknown]
  - Tonsillitis [Unknown]
  - Ovarian cyst [Unknown]
  - Pyrexia [Unknown]
  - Varicella [Unknown]
  - Sinusitis [Unknown]
  - Swelling [Unknown]
  - Peripheral swelling [Unknown]
  - Eye pain [Unknown]
  - Amenorrhoea [Unknown]
  - Extraocular muscle paresis [Unknown]
  - Implant site pain [Unknown]
  - Abdominal pain lower [Unknown]
  - Lichen planus [Unknown]
  - Breast mass [Unknown]
  - Arthralgia [Unknown]
  - Mouth ulceration [Unknown]
  - Oropharyngeal pain [Unknown]
  - Respiratory tract infection [Unknown]
